FAERS Safety Report 14266207 (Version 4)
Quarter: 2018Q1

REPORT INFORMATION
  Report Type: Report from Study
  Country: US (occurrence: US)
  Receive Date: 20171210
  Receipt Date: 20180116
  Transmission Date: 20180508
  Serious: Yes (Other)
  Sender: FDA-Public Use
  Company Number: US-TESARO, INC.-US-2017TSO03894

PATIENT

DRUGS (6)
  1. NORCO [Concomitant]
     Active Substance: ACETAMINOPHEN\HYDROCODONE BITARTRATE
     Indication: PRODUCT USED FOR UNKNOWN INDICATION
     Dosage: UNK
  2. OXYCODONE [Concomitant]
     Active Substance: OXYCODONE
     Indication: PRODUCT USED FOR UNKNOWN INDICATION
     Dosage: UNK
  3. LORAZEPAM. [Concomitant]
     Active Substance: LORAZEPAM
     Indication: PRODUCT USED FOR UNKNOWN INDICATION
     Dosage: UNK
  4. ZEJULA [Suspect]
     Active Substance: NIRAPARIB
     Indication: OVARIAN CANCER
     Dosage: 300 MG, QD
     Route: 048
     Dates: start: 20170927
  5. LEXAPRO [Concomitant]
     Active Substance: ESCITALOPRAM OXALATE
     Indication: PRODUCT USED FOR UNKNOWN INDICATION
     Dosage: UNK
  6. GABAPENTIN. [Concomitant]
     Active Substance: GABAPENTIN
     Indication: PRODUCT USED FOR UNKNOWN INDICATION
     Dosage: UNK

REACTIONS (13)
  - Bladder discomfort [Unknown]
  - Auditory disorder [Unknown]
  - Insulin resistance test [Unknown]
  - Feeling abnormal [Unknown]
  - Decreased appetite [Unknown]
  - Headache [Unknown]
  - Cystitis [Unknown]
  - Dizziness [Unknown]
  - Flank pain [Recovering/Resolving]
  - Renal pain [Unknown]
  - Dysgeusia [Unknown]
  - Asthenia [Unknown]
  - Anaemia [Unknown]
